FAERS Safety Report 22242502 (Version 1)
Quarter: 2023Q2

REPORT INFORMATION
  Report Type: Other
  Country: CA (occurrence: CA)
  Receive Date: 20230422
  Receipt Date: 20230422
  Transmission Date: 20230721
  Serious: Yes (Hospitalization, Other)
  Sender: FDA-Public Use
  Company Number: CA-APOTEX-2023AP006898

PATIENT
  Age: 73 Year
  Sex: Male

DRUGS (1)
  1. LENALIDOMIDE [Suspect]
     Active Substance: LENALIDOMIDE
     Indication: Product used for unknown indication
     Dosage: 25 MILLIGRAM
     Route: 048

REACTIONS (8)
  - Heart rate increased [Unknown]
  - Lower respiratory tract infection [Unknown]
  - SARS-CoV-2 test positive [Unknown]
  - Ear infection [Unknown]
  - Peripheral swelling [Unknown]
  - Pneumonia [Unknown]
  - Rhinitis [Unknown]
  - Dyspnoea exertional [Unknown]
